FAERS Safety Report 5198146-6 (Version None)
Quarter: 2006Q4

REPORT INFORMATION
  Report Type: 
  Country: None (occurrence: None)
  Receive Date: 20061227
  Receipt Date: 20061212
  Transmission Date: 20070319
  Serious: Yes (Other)
  Sender: FDA-Public Use
  Company Number: 2006152928

PATIENT
  Age: 65 Year
  Sex: Male

DRUGS (4)
  1. LYRICA [Suspect]
     Dosage: 150 MG (75 MG, 2 IN 1 D)
  2. LORMETAZEPAM (LORMETAZEPAM) [Concomitant]
  3. ACETAMINOPHEN [Concomitant]
  4. ALIMEMAZINE TARTRATE (ALIMEMAZINE TARTRATE) [Concomitant]

REACTIONS (1)
  - CHOLESTASIS [None]
